FAERS Safety Report 6122025-0 (Version None)
Quarter: 2009Q1

REPORT INFORMATION
  Report Type: 
  Country: None (occurrence: None)
  Receive Date: 20090316
  Receipt Date: 20090304
  Transmission Date: 20090719
  Serious: Yes (Hospitalization, Disabling, Congenital Anomaly)
  Sender: FDA-Public Use
  Company Number: ADE# 09-029

PATIENT
  Sex: Male

DRUGS (1)
  1. MIDRIN CAPSULES CARACO/CARACO [Suspect]

REACTIONS (1)
  - DRUG EXPOSURE DURING PREGNANCY [None]
